FAERS Safety Report 9267330 (Version 2)
Quarter: 2013Q2

REPORT INFORMATION
  Report Type: Spontaneous
  Country: DE (occurrence: DE)
  Receive Date: 20130502
  Receipt Date: 20130508
  Transmission Date: 20140414
  Serious: Yes (Hospitalization)
  Sender: FDA-Public Use
  Company Number: DE-JNJFOC-20130417532

PATIENT
  Age: 25 Year
  Sex: Female
  Weight: 60 kg

DRUGS (6)
  1. IBUPROFEN [Suspect]
     Indication: SUICIDAL IDEATION
     Route: 048
     Dates: start: 20130419, end: 20130419
  2. DOLORMIN [Suspect]
     Route: 065
  3. DOLORMIN [Suspect]
     Indication: SUICIDAL IDEATION
     Dosage: 19 TABLETS
     Route: 065
  4. NAPROXEN [Suspect]
     Indication: SUICIDAL IDEATION
     Route: 048
     Dates: start: 20130419, end: 20130419
  5. PANTOZOL [Suspect]
     Indication: SUICIDAL IDEATION
     Route: 048
     Dates: start: 20130419, end: 20130419
  6. UNACID [Suspect]
     Indication: SUICIDAL IDEATION
     Dosage: 10 TABLETS
     Route: 065

REACTIONS (3)
  - Intentional overdose [Unknown]
  - Suicidal ideation [Unknown]
  - Nausea [Recovered/Resolved]
